FAERS Safety Report 16521510 (Version 1)
Quarter: 2019Q3

REPORT INFORMATION
  Report Type: Spontaneous
  Country: PL (occurrence: PL)
  Receive Date: 20190703
  Receipt Date: 20190703
  Transmission Date: 20191004
  Serious: Yes (Life-Threatening, Disabling)
  Sender: FDA-Public Use
  Company Number: PL-SUN PHARMACEUTICAL INDUSTRIES LTD-2019RR-212408

PATIENT
  Age: 24 Year
  Sex: Male
  Weight: 60 kg

DRUGS (2)
  1. AXOTRET [Suspect]
     Active Substance: ISOTRETINOIN
     Indication: ACNE
     Dosage: DOSE: 20MG IN THE MORNING, 10 MG IN THE EVENING ()
     Route: 048
     Dates: start: 201401, end: 201409
  2. TETRACYCLINE [Concomitant]
     Active Substance: TETRACYCLINE
     Indication: ACNE
     Dosage: ()
     Route: 048
     Dates: start: 201301, end: 201304

REACTIONS (16)
  - Psychomotor retardation [Recovering/Resolving]
  - Somnolence [Recovering/Resolving]
  - Depressed mood [Recovering/Resolving]
  - Fatigue [Recovering/Resolving]
  - Disturbance in attention [Recovering/Resolving]
  - Suicidal ideation [Recovering/Resolving]
  - Anxiety [Recovering/Resolving]
  - Headache [Recovering/Resolving]
  - Apathy [Recovering/Resolving]
  - Memory impairment [Recovering/Resolving]
  - Mental impairment [Recovering/Resolving]
  - Mental fatigue [Recovering/Resolving]
  - Anhedonia [Recovering/Resolving]
  - Bradyphrenia [Recovering/Resolving]
  - Learning disorder [Recovering/Resolving]
  - Fear [Recovering/Resolving]

NARRATIVE: CASE EVENT DATE: 201402
